FAERS Safety Report 8971125 (Version 1)
Quarter: 2012Q4

REPORT INFORMATION
  Report Type: 
  Country: NL (occurrence: NL)
  Receive Date: 20121217
  Receipt Date: 20121217
  Transmission Date: 20130627
  Serious: Yes (Hospitalization)
  Sender: FDA-Public Use
  Company Number: NL-PFIZER INC-2012315643

PATIENT
  Age: 59 Year
  Sex: Female
  Weight: 90.6 kg

DRUGS (9)
  1. GENOTROPIN [Suspect]
     Dosage: 0.3 mg, 1x/day,7 injections/week
     Route: 058
     Dates: start: 20040107
  2. LEVOTHYROXINE [Concomitant]
     Indication: THYROID DISORDER
     Dosage: UNK
     Dates: start: 19830401
  3. LEVOTHYROXINE [Concomitant]
     Indication: PRIMARY HYPOTHYROIDISM
  4. HYDROCORTISONE [Concomitant]
     Indication: ACTH DECREASED
     Dosage: UNK
     Dates: start: 19950119
  5. ATENOLOL [Concomitant]
     Indication: ESSENTIAL HYPERTENSION
     Dosage: UNK
     Dates: start: 20000101
  6. SELEKTINE [Concomitant]
     Indication: PURE HYPERCHOLESTEROLEMIA
     Dosage: UNK
     Dates: start: 20000101
  7. FUROSEMIDE [Concomitant]
     Dosage: UNK
     Dates: start: 20010227
  8. COZAAR [Concomitant]
     Indication: HYPERTENSION
     Dosage: UNK
     Dates: start: 20021029
  9. DHEA [Concomitant]
     Dosage: UNK
     Dates: start: 20070531

REACTIONS (1)
  - Electrolyte imbalance [Unknown]
